FAERS Safety Report 20706940 (Version 1)
Quarter: 2022Q2

REPORT INFORMATION
  Report Type: Spontaneous
  Country: MA (occurrence: MA)
  Receive Date: 20220413
  Receipt Date: 20220413
  Transmission Date: 20220721
  Serious: Yes (Death, Other)
  Sender: FDA-Public Use
  Company Number: MA-SLATE RUN PHARMACEUTICALS-22MA001024

PATIENT

DRUGS (6)
  1. AZITHROMYCIN [Suspect]
     Active Substance: AZITHROMYCIN
     Indication: COVID-19
     Dosage: UNK
  2. HYDROXYCHLOROQUINE [Suspect]
     Active Substance: HYDROXYCHLOROQUINE
     Indication: COVID-19
  3. DOXORUBICIN [Suspect]
     Active Substance: DOXORUBICIN
     Indication: Breast cancer
     Dosage: TOTAL OF 4 SESSIONS WITH A CUMULATIVE DOSE OF 240 MG/M2
  4. VITAMINS NOS [Concomitant]
     Active Substance: VITAMINS
     Indication: COVID-19
  5. CORTICOSTEROID NOS [Concomitant]
     Active Substance: CORTICOSTEROID NOS
     Indication: COVID-19
  6. UNSPECIFIED INGREDIENT [Concomitant]
     Active Substance: UNSPECIFIED INGREDIENT
     Indication: COVID-19

REACTIONS (12)
  - Cardio-respiratory arrest [Fatal]
  - Respiratory disorder [Unknown]
  - Haemodynamic instability [Unknown]
  - Acute pulmonary oedema [Unknown]
  - Bundle branch block right [Unknown]
  - Cardiomyopathy [Unknown]
  - Ejection fraction decreased [Unknown]
  - Mitral valve incompetence [Unknown]
  - Pericardial effusion [Unknown]
  - Cardiogenic shock [Unknown]
  - Electrocardiogram QT prolonged [Unknown]
  - Off label use [Recovered/Resolved]
